FAERS Safety Report 20765215 (Version 2)
Quarter: 2022Q2

REPORT INFORMATION
  Report Type: Spontaneous
  Country: US (occurrence: US)
  Receive Date: 20220428
  Receipt Date: 20220511
  Transmission Date: 20220721
  Serious: Yes (Other)
  Sender: FDA-Public Use
  Company Number: US-TEVA-2022-US-2030536

PATIENT
  Age: 70 Year
  Sex: Female

DRUGS (7)
  1. PREDNISONE [Suspect]
     Active Substance: PREDNISONE
     Indication: Idiopathic pulmonary fibrosis
     Dosage: 10 MILLIGRAM DAILY;
     Route: 048
  2. METHOTREXATE [Suspect]
     Active Substance: METHOTREXATE
     Indication: Idiopathic pulmonary fibrosis
     Dosage: 10 MG ONCE A WEEK
     Route: 065
  3. OZURDEX [Suspect]
     Active Substance: DEXAMETHASONE
     Indication: Macular oedema
     Dosage: INTRAVITREAL DEXAMETHASONE IMPLANT INJECTIONS IN THE LEFT EYE; SIX INTRAVITREAL IMPLANTS
     Route: 031
  4. TETRACAINE [Concomitant]
     Active Substance: TETRACAINE
     Indication: Anaesthesia
     Dosage: APPLIED TO THE LEFT EYE
     Route: 061
  5. LIDOCAINE [Concomitant]
     Active Substance: LIDOCAINE
     Indication: Anaesthesia
     Dosage: SUBCONJUNCTIVAL INJECTION OF 2% LIDOCAINE SOLUTION GIVEN INFEROTEMPORALLY
     Route: 031
  6. POVIDONE-IODINE [Concomitant]
     Active Substance: POVIDONE-IODINE
     Indication: Prophylaxis
     Dosage: INSTILLED IN THE INFERIOR CONJUNCTIVAL CUL-DE-SA; HE EYELIDS AND LASHES WERE SWABBED WITH POVIDON...
     Route: 031
  7. SALINE [Concomitant]
     Active Substance: SODIUM CHLORIDE
     Indication: Eye irrigation
     Dosage: OCULAR SURFACE WAS IRRIGATED
     Route: 065

REACTIONS (3)
  - Bacterial endophthalmitis [Recovering/Resolving]
  - Impaired healing [Recovering/Resolving]
  - Wound drainage [Recovering/Resolving]
